FAERS Safety Report 11150006 (Version 1)
Quarter: 2015Q2

REPORT INFORMATION
  Report Type: Spontaneous
  Country: JP (occurrence: JP)
  Receive Date: 20150529
  Receipt Date: 20150529
  Transmission Date: 20150821
  Serious: Yes (Life-Threatening, Other)
  Sender: FDA-Public Use
  Company Number: JP-ASTRAZENECA-2014SE71835

PATIENT
  Age: 71 Day
  Sex: Male

DRUGS (82)
  1. MEROPEN [Suspect]
     Active Substance: MEROPENEM
     Indication: MENINGITIS BACTERIAL
     Route: 042
     Dates: start: 20140807, end: 20140808
  2. MEROPEN [Suspect]
     Active Substance: MEROPENEM
     Indication: MENINGITIS BACTERIAL
     Route: 042
     Dates: start: 20140809, end: 20140814
  3. MEROPEN [Suspect]
     Active Substance: MEROPENEM
     Indication: MENINGITIS BACTERIAL
     Route: 042
     Dates: start: 20140821, end: 20140825
  4. MEROPEN [Suspect]
     Active Substance: MEROPENEM
     Indication: MENINGITIS BACTERIAL
     Route: 042
     Dates: start: 20140908, end: 20140910
  5. MEROPEN [Suspect]
     Active Substance: MEROPENEM
     Indication: MENINGITIS BACTERIAL
     Route: 042
     Dates: start: 20140912, end: 20140914
  6. VICCILLIN [Suspect]
     Active Substance: AMPICILLIN
     Indication: MENINGITIS
     Route: 042
     Dates: start: 20140616, end: 20140710
  7. VICCILLIN [Suspect]
     Active Substance: AMPICILLIN
     Indication: MENINGITIS
     Route: 042
     Dates: start: 20140717, end: 20140718
  8. VICCILLIN [Suspect]
     Active Substance: AMPICILLIN
     Indication: MENINGITIS
     Route: 042
     Dates: start: 20140729, end: 20140801
  9. VICCILLIN [Suspect]
     Active Substance: AMPICILLIN
     Indication: MENINGITIS
     Route: 042
     Dates: start: 20140910, end: 20140910
  10. VICCILLIN [Suspect]
     Active Substance: AMPICILLIN
     Indication: MENINGITIS
     Route: 042
     Dates: start: 20140915, end: 20140915
  11. VICCILLIN [Suspect]
     Active Substance: AMPICILLIN
     Indication: MENINGITIS
     Route: 042
     Dates: start: 20140926, end: 20141006
  12. VICCILLIN [Suspect]
     Active Substance: AMPICILLIN
     Indication: MENINGITIS
     Route: 042
     Dates: start: 20141007, end: 20141014
  13. MANNITOL. [Concomitant]
     Active Substance: MANNITOL
     Indication: PROPHYLAXIS
     Dates: start: 20140612, end: 20140612
  14. CONCENTRATED HUMAN RED BLOOD CELLS [Concomitant]
  15. MEROPEN [Suspect]
     Active Substance: MEROPENEM
     Indication: MENINGITIS BACTERIAL
     Route: 042
     Dates: start: 20140902, end: 20140903
  16. MEROPEN [Suspect]
     Active Substance: MEROPENEM
     Indication: MENINGITIS BACTERIAL
     Route: 042
     Dates: start: 20140919, end: 20140925
  17. MEROPEN [Suspect]
     Active Substance: MEROPENEM
     Indication: MENINGITIS BACTERIAL
     Route: 042
     Dates: start: 20140930, end: 20141006
  18. VICCILLIN [Suspect]
     Active Substance: AMPICILLIN
     Indication: MENINGITIS
     Route: 042
     Dates: start: 20140605, end: 20140615
  19. VICCILLIN [Suspect]
     Active Substance: AMPICILLIN
     Indication: MENINGITIS
     Route: 042
     Dates: start: 20140911, end: 20140912
  20. VICCILLIN [Suspect]
     Active Substance: AMPICILLIN
     Indication: MENINGITIS
     Route: 042
     Dates: start: 20141016, end: 20141103
  21. MEROPEN [Suspect]
     Active Substance: MEROPENEM
     Indication: MENINGITIS BACTERIAL
     Route: 042
     Dates: start: 20140728, end: 20140728
  22. VICCILLIN [Suspect]
     Active Substance: AMPICILLIN
     Indication: MENINGITIS
     Route: 042
     Dates: start: 20140827, end: 20140901
  23. POLYGLOBIN [Concomitant]
     Route: 042
     Dates: start: 20140605, end: 20140605
  24. HUMAN NORMAL IMMUNOGLOBULIN [Concomitant]
     Active Substance: HUMAN IMMUNOGLOBULIN G
     Dates: start: 20140605, end: 20140607
  25. MANNITOL. [Concomitant]
     Active Substance: MANNITOL
     Indication: BRAIN OEDEMA
     Dates: start: 20140612, end: 20140612
  26. VANCOMYCIN HYDROCHLORIDE. [Concomitant]
     Active Substance: VANCOMYCIN HYDROCHLORIDE
     Indication: MENINGITIS
     Dates: start: 20140614, end: 20140615
  27. MIDAZOLAM [Concomitant]
     Active Substance: MIDAZOLAM\MIDAZOLAM HYDROCHLORIDE
     Dates: start: 20140609, end: 20140609
  28. MEROPEN [Suspect]
     Active Substance: MEROPENEM
     Indication: MENINGITIS BACTERIAL
     Route: 042
     Dates: start: 20140815, end: 20140820
  29. MEROPEN [Suspect]
     Active Substance: MEROPENEM
     Indication: MENINGITIS BACTERIAL
     Route: 042
     Dates: start: 20140826, end: 20140901
  30. MEROPEN [Suspect]
     Active Substance: MEROPENEM
     Indication: MENINGITIS BACTERIAL
     Route: 042
     Dates: start: 20140926, end: 20140929
  31. MEROPEN [Suspect]
     Active Substance: MEROPENEM
     Indication: MENINGITIS BACTERIAL
     Route: 042
     Dates: start: 20141007, end: 20141015
  32. VICCILLIN [Suspect]
     Active Substance: AMPICILLIN
     Indication: MENINGITIS
     Route: 042
     Dates: start: 20140722, end: 20140723
  33. VICCILLIN [Suspect]
     Active Substance: AMPICILLIN
     Indication: MENINGITIS
     Route: 042
     Dates: start: 20140804, end: 20140806
  34. VICCILLIN [Suspect]
     Active Substance: AMPICILLIN
     Indication: MENINGITIS
     Route: 042
     Dates: start: 20140807, end: 20140808
  35. VICCILLIN [Suspect]
     Active Substance: AMPICILLIN
     Indication: MENINGITIS
     Route: 042
     Dates: start: 20140902, end: 20140908
  36. FREEZE-DRIED CONCENTRATED HUMAN ANTITHROMBIN 3 [Concomitant]
     Route: 042
     Dates: start: 20140606, end: 20140606
  37. FREEZE-DRIED CONCENTRATED HUMAN ANTITHROMBIN 3 [Concomitant]
     Route: 042
     Dates: start: 20140607, end: 20140607
  38. MANNITOL. [Concomitant]
     Active Substance: MANNITOL
     Indication: BRAIN OEDEMA
     Dates: start: 20140607, end: 20140610
  39. MANNITOL. [Concomitant]
     Active Substance: MANNITOL
     Indication: PROPHYLAXIS
     Dates: start: 20140611, end: 20140611
  40. MANNITOL. [Concomitant]
     Active Substance: MANNITOL
     Indication: PROPHYLAXIS
     Dates: start: 20140613, end: 20140613
  41. MEROPEN [Suspect]
     Active Substance: MEROPENEM
     Indication: MENINGITIS BACTERIAL
     Route: 042
     Dates: start: 20141028, end: 20141103
  42. VICCILLIN [Suspect]
     Active Substance: AMPICILLIN
     Indication: MENINGITIS
     Route: 042
     Dates: start: 20140719, end: 20140721
  43. VICCILLIN [Suspect]
     Active Substance: AMPICILLIN
     Indication: MENINGITIS
     Route: 042
     Dates: start: 20140809, end: 20140811
  44. VICCILLIN [Suspect]
     Active Substance: AMPICILLIN
     Indication: MENINGITIS
     Route: 042
     Dates: start: 20140813, end: 20140814
  45. CEFOTAXIME [Concomitant]
     Active Substance: CEFOTAXIME\CEFOTAXIME SODIUM
     Indication: MENINGITIS
     Route: 042
     Dates: start: 20140605, end: 20140610
  46. SULFAMETHOXAZOLE-TRIMETHOPRIM (SMZ) [Concomitant]
     Active Substance: SULFAMETHOXAZOLE\TRIMETHOPRIM
     Route: 048
     Dates: start: 20140731, end: 20141105
  47. MEROPEN [Suspect]
     Active Substance: MEROPENEM
     Indication: MENINGITIS BACTERIAL
     Route: 042
     Dates: start: 20140915, end: 20140918
  48. VICCILLIN [Suspect]
     Active Substance: AMPICILLIN
     Indication: MENINGITIS
     Route: 042
     Dates: start: 20140724, end: 20140724
  49. VICCILLIN [Suspect]
     Active Substance: AMPICILLIN
     Indication: MENINGITIS
     Route: 042
     Dates: start: 20140728, end: 20140728
  50. VICCILLIN [Suspect]
     Active Substance: AMPICILLIN
     Indication: MENINGITIS
     Route: 042
     Dates: start: 20140823, end: 20140825
  51. VICCILLIN [Suspect]
     Active Substance: AMPICILLIN
     Indication: MENINGITIS
     Route: 042
     Dates: start: 20140826, end: 20140826
  52. VICCILLIN [Suspect]
     Active Substance: AMPICILLIN
     Indication: MENINGITIS
     Route: 042
     Dates: start: 20140909, end: 20140909
  53. CEFOTAXIME [Concomitant]
     Active Substance: CEFOTAXIME\CEFOTAXIME SODIUM
     Indication: MENINGITIS
     Dates: start: 20140717, end: 20140718
  54. MANNITOL. [Concomitant]
     Active Substance: MANNITOL
     Indication: PROPHYLAXIS
     Dates: start: 20140606, end: 20140606
  55. MANNITOL. [Concomitant]
     Active Substance: MANNITOL
     Indication: PROPHYLAXIS
     Dates: start: 20140607, end: 20140610
  56. MANNITOL. [Concomitant]
     Active Substance: MANNITOL
     Indication: BRAIN OEDEMA
     Dates: start: 20140611, end: 20140611
  57. MANNITOL. [Concomitant]
     Active Substance: MANNITOL
     Indication: BRAIN OEDEMA
     Dates: start: 20140613, end: 20140613
  58. NOBELBAR [Concomitant]
     Active Substance: PHENOBARBITAL SODIUM
     Indication: SEIZURE
     Route: 042
     Dates: start: 20140609, end: 20141105
  59. MEROPEN [Suspect]
     Active Substance: MEROPENEM
     Indication: MENINGITIS BACTERIAL
     Route: 042
     Dates: start: 20140725, end: 20140727
  60. MEROPEN [Suspect]
     Active Substance: MEROPENEM
     Indication: MENINGITIS BACTERIAL
     Route: 042
     Dates: start: 20140729, end: 20140801
  61. MEROPEN [Suspect]
     Active Substance: MEROPENEM
     Indication: MENINGITIS BACTERIAL
     Route: 042
     Dates: start: 20141016, end: 20141027
  62. VICCILLIN [Suspect]
     Active Substance: AMPICILLIN
     Indication: MENINGITIS
     Route: 042
     Dates: start: 20140812, end: 20140812
  63. VICCILLIN [Suspect]
     Active Substance: AMPICILLIN
     Indication: MENINGITIS
     Route: 042
     Dates: start: 20140912, end: 20140914
  64. VICCILLIN [Suspect]
     Active Substance: AMPICILLIN
     Indication: MENINGITIS
     Route: 042
     Dates: start: 20140916, end: 20140925
  65. FRESH-FROZEN HUMAN PLASMA [Concomitant]
     Dates: start: 20140606, end: 20140606
  66. ORGARAN [Concomitant]
     Active Substance: DANAPAROID SODIUM
     Route: 042
     Dates: start: 20140606, end: 20140611
  67. VANCOMYCIN HYDROCHLORIDE. [Concomitant]
     Active Substance: VANCOMYCIN HYDROCHLORIDE
     Indication: MENINGITIS
     Dates: start: 20140616, end: 20140625
  68. ZYVOX [Concomitant]
     Active Substance: LINEZOLID
  69. DIAZEPAM. [Concomitant]
     Active Substance: DIAZEPAM
     Indication: SEIZURE
     Dates: start: 20140607
  70. MIDAZOLAM [Concomitant]
     Active Substance: MIDAZOLAM\MIDAZOLAM HYDROCHLORIDE
     Dates: start: 20140607, end: 20140608
  71. MEROPEN [Suspect]
     Active Substance: MEROPENEM
     Indication: MENINGITIS BACTERIAL
     Route: 042
     Dates: start: 20140802, end: 20140806
  72. MEROPEN [Suspect]
     Active Substance: MEROPENEM
     Indication: MENINGITIS BACTERIAL
     Route: 042
     Dates: start: 20140911, end: 20140911
  73. VICCILLIN [Suspect]
     Active Substance: AMPICILLIN
     Indication: MENINGITIS
     Route: 042
     Dates: start: 20140714, end: 20140716
  74. VICCILLIN [Suspect]
     Active Substance: AMPICILLIN
     Indication: MENINGITIS
     Route: 042
     Dates: start: 20140725, end: 20140727
  75. VICCILLIN [Suspect]
     Active Substance: AMPICILLIN
     Indication: MENINGITIS
     Route: 042
     Dates: start: 20140802, end: 20140803
  76. VICCILLIN [Suspect]
     Active Substance: AMPICILLIN
     Indication: MENINGITIS
     Route: 042
     Dates: start: 20140815, end: 20140822
  77. VICCILLIN [Suspect]
     Active Substance: AMPICILLIN
     Indication: MENINGITIS
     Route: 042
     Dates: start: 20141015, end: 20141015
  78. CEFOTAXIME [Concomitant]
     Active Substance: CEFOTAXIME\CEFOTAXIME SODIUM
     Indication: MENINGITIS
     Dates: start: 20140714, end: 20140717
  79. RECOMODULIN [Concomitant]
     Active Substance: THROMBOMODULIN ALFA
     Indication: SEPSIS
     Dates: start: 20140606, end: 20140608
  80. MANNITOL. [Concomitant]
     Active Substance: MANNITOL
     Indication: BRAIN OEDEMA
     Dates: start: 20140606, end: 20140606
  81. NOBELBAR [Concomitant]
     Active Substance: PHENOBARBITAL SODIUM
     Indication: SEIZURE
     Route: 042
     Dates: start: 20140607, end: 20140608
  82. ASPIRIN. [Concomitant]
     Active Substance: ASPIRIN
     Route: 048

REACTIONS (4)
  - Diarrhoea [Recovered/Resolved]
  - Neutrophil count decreased [Recovered/Resolved]
  - Hepatic function abnormal [Not Recovered/Not Resolved]
  - Seizure [Recovered/Resolved]

NARRATIVE: CASE EVENT DATE: 20140726
